FAERS Safety Report 5813529-6 (Version None)
Quarter: 2008Q3

REPORT INFORMATION
  Report Type: 
  Country: None (occurrence: None)
  Receive Date: 20080717
  Receipt Date: 20080711
  Transmission Date: 20090109
  Serious: Yes (Other)
  Sender: FDA-Public Use
  Company Number: US-BAYER-200714230BCC

PATIENT
  Age: 68 Year
  Sex: Male
  Weight: 95 kg

DRUGS (6)
  1. ASPIRIN [Suspect]
     Indication: ISCHAEMIC HEART DISEASE PROPHYLAXIS
     Route: 048
     Dates: start: 20060101
  2. ASPIRIN [Suspect]
     Route: 048
     Dates: start: 20060101
  3. ASPIRIN [Suspect]
     Indication: ISCHAEMIC HEART DISEASE PROPHYLAXIS
     Route: 048
     Dates: start: 20070101
  4. GLUCOPHAGE [Concomitant]
  5. DIAVAN [Concomitant]
  6. ISOSORBIDE DINITRATE [Concomitant]

REACTIONS (1)
  - HEARING IMPAIRED [None]
